FAERS Safety Report 20773256 (Version 1)
Quarter: 2022Q2

REPORT INFORMATION
  Report Type: Spontaneous
  Country: US (occurrence: US)
  Receive Date: 20220502
  Receipt Date: 20220502
  Transmission Date: 20220720
  Serious: No
  Sender: FDA-Public Use
  Company Number: US-MAYNE PHARMA-2022MYN000095

PATIENT
  Age: 18 Year
  Sex: Female

DRUGS (2)
  1. NEXTSTELLIS [Suspect]
     Active Substance: DROSPIRENONE\ESTETROL MONOHYDRATE
     Indication: Contraception
     Dosage: UNK
     Route: 048
     Dates: end: 20220402
  2. NEXTSTELLIS [Suspect]
     Active Substance: DROSPIRENONE\ESTETROL MONOHYDRATE
     Dosage: 14.2 UNK
     Route: 048
     Dates: end: 20220402

REACTIONS (1)
  - Mood swings [Unknown]
